FAERS Safety Report 5261280-6 (Version None)
Quarter: 2007Q1

REPORT INFORMATION
  Report Type: 
  Country: None (occurrence: None)
  Receive Date: 20070309
  Receipt Date: 20070302
  Transmission Date: 20070707
  Serious: Yes (Other)
  Sender: FDA-Public Use
  Company Number: US-PFIZER INC-2007017132

PATIENT
  Sex: Female

DRUGS (1)
  1. ZYRTEC [Suspect]

REACTIONS (1)
  - ENDOCRINE NEOPLASM [None]
